FAERS Safety Report 7947196-2 (Version None)
Quarter: 2011Q4

REPORT INFORMATION
  Report Type: 
  Country: None (occurrence: None)
  Receive Date: 20111129
  Receipt Date: 20111128
  Transmission Date: 20120403
  Serious: Yes (Death, Other)
  Sender: FDA-Public Use
  Company Number: CN-BAYER-2011-105542

PATIENT
  Age: 40 Year
  Sex: Female
  Weight: 50 kg

DRUGS (1)
  1. ULTRAVIST 370 [Suspect]
     Indication: COMPUTERISED TOMOGRAM ABDOMEN
     Dosage: 80 ML, ONCE
     Dates: start: 20111031, end: 20111031

REACTIONS (10)
  - HYPOKALAEMIA [None]
  - ANAPHYLACTIC SHOCK [None]
  - DYSPNOEA [None]
  - NAUSEA [None]
  - PULSE PRESSURE DECREASED [None]
  - FATIGUE [None]
  - VENTRICULAR FIBRILLATION [None]
  - DIZZINESS [None]
  - PALPITATIONS [None]
  - VOMITING [None]
